FAERS Safety Report 15627136 (Version 7)
Quarter: 2020Q1

REPORT INFORMATION
  Report Type: Spontaneous
  Country: BR (occurrence: BR)
  Receive Date: 20181116
  Receipt Date: 20200127
  Transmission Date: 20200409
  Serious: Yes (Other)
  Sender: FDA-Public Use
  Company Number: BR-GLAXOSMITHKLINE-BR2018GSK188262

PATIENT
  Sex: Female
  Weight: 48 kg

DRUGS (1)
  1. BENLYSTA [Suspect]
     Active Substance: BELIMUMAB
     Indication: SYSTEMIC LUPUS ERYTHEMATOSUS
     Dosage: 520 MG, UNK
     Dates: start: 20181003

REACTIONS (11)
  - Weight decreased [Unknown]
  - Product dose omission [Not Recovered/Not Resolved]
  - Circumstance or information capable of leading to medication error [Not Recovered/Not Resolved]
  - Condition aggravated [Unknown]
  - Accidental underdose [Not Recovered/Not Resolved]
  - Menstruation irregular [Unknown]
  - Leukopenia [Unknown]
  - Inner ear inflammation [Unknown]
  - Asthenia [Unknown]
  - Inappropriate schedule of product administration [Unknown]
  - Dysmenorrhoea [Unknown]
